FAERS Safety Report 9661224 (Version 2)
Quarter: 2014Q1

REPORT INFORMATION
  Report Type: Spontaneous
  Country: IT (occurrence: IT)
  Receive Date: 20131031
  Receipt Date: 20140219
  Transmission Date: 20141002
  Serious: Yes (Death)
  Sender: FDA-Public Use
  Company Number: IT-TEVA-440803ISR

PATIENT
  Age: 84 Year
  Sex: Female

DRUGS (6)
  1. CITALOPRAM RATIOPHARM 20MG [Suspect]
     Indication: DEPRESSION
     Route: 048
     Dates: start: 20121101, end: 20131019
  2. METFORMINA [Concomitant]
     Dosage: 1000 MILLIGRAM DAILY;
     Route: 048
  3. AMLODIPINA [Concomitant]
     Dosage: 5 MILLIGRAM DAILY;
     Route: 048
  4. FUROSEMIDE [Concomitant]
     Dosage: 25 MILLIGRAM DAILY;
     Route: 048
  5. OMEPRAZOLO [Concomitant]
     Dosage: 20 MILLIGRAM DAILY;
  6. TIMOLOLO [Concomitant]

REACTIONS (4)
  - Sudden death [Fatal]
  - Haemodynamic instability [Fatal]
  - Dyspnoea [Fatal]
  - Cyanosis central [Fatal]
